FAERS Safety Report 20020665 (Version 7)
Quarter: 2021Q4

REPORT INFORMATION
  Report Type: Report from Study
  Country: IN (occurrence: IN)
  Receive Date: 20211101
  Receipt Date: 20211228
  Transmission Date: 20220303
  Serious: Yes (Death, Hospitalization)
  Sender: FDA-Public Use
  Company Number: IN-PFIZER INC-202101430906

PATIENT
  Age: 66 Year
  Sex: Female
  Weight: 27 kg

DRUGS (10)
  1. DACOMITINIB [Suspect]
     Active Substance: DACOMITINIB
     Indication: Lung neoplasm malignant
     Dosage: 3 TABLETS (45 MG), 1X/DAY (OD), FIRST CYCLE
     Route: 048
     Dates: start: 20210214, end: 20210315
  2. DACOMITINIB [Suspect]
     Active Substance: DACOMITINIB
     Dosage: 2 TABLETS (30 MG), 1X/DAY (OD), SECOND CYCLE
     Route: 048
     Dates: start: 20210316, end: 20210412
  3. DACOMITINIB [Suspect]
     Active Substance: DACOMITINIB
     Dosage: 2 TABLETS (30 MG), 1X/DAY (OD), THIRD CYCLE
     Route: 048
     Dates: start: 20210413, end: 20210507
  4. DACOMITINIB [Suspect]
     Active Substance: DACOMITINIB
     Dosage: 2 TABLETS (30 MG), 1X/DAY (OD), FOURTH CYCLE
     Route: 048
     Dates: start: 20210508, end: 20210603
  5. DACOMITINIB [Suspect]
     Active Substance: DACOMITINIB
     Dosage: 2 TABLETS (30 MG), 1X/DAY (OD), FIFTH CYCLE
     Route: 048
     Dates: start: 20210604, end: 20210701
  6. DACOMITINIB [Suspect]
     Active Substance: DACOMITINIB
     Dosage: 2 TABLETS (30 MG), 1X/DAY (OD), SIXTH CYCLE
     Route: 048
     Dates: start: 20210702, end: 20210802
  7. DACOMITINIB [Suspect]
     Active Substance: DACOMITINIB
     Dosage: 2 TABLETS (30 MG), 1X/DAY (OD), SEVENTH CYCLE
     Route: 048
     Dates: start: 20210803, end: 20210828
  8. DACOMITINIB [Suspect]
     Active Substance: DACOMITINIB
     Dosage: 2 TABLETS (30 MG), 1X/DAY (OD), EIGHTH CYCLE
     Route: 048
     Dates: start: 20210829, end: 20210924
  9. DACOMITINIB [Suspect]
     Active Substance: DACOMITINIB
     Dosage: 2 TABLETS (30 MG), 1X/DAY (OD), NINTH CYCLE
     Route: 048
     Dates: start: 20210925, end: 20211022
  10. RANITIDINE HYDROCHLORIDE [Concomitant]
     Active Substance: RANITIDINE HYDROCHLORIDE
     Indication: Dyspepsia
     Dosage: UNK UNK, 2X/DAY
     Route: 048
     Dates: start: 20211018, end: 20211022

REACTIONS (4)
  - Abdominal pain [Fatal]
  - Septic shock [Fatal]
  - Hepatic encephalopathy [Fatal]
  - Neoplasm progression [Fatal]

NARRATIVE: CASE EVENT DATE: 20211018
